FAERS Safety Report 19741221 (Version 2)
Quarter: 2021Q3

REPORT INFORMATION
  Report Type: Spontaneous
  Country: US (occurrence: US)
  Receive Date: 20210824
  Receipt Date: 20210908
  Transmission Date: 20211014
  Serious: Yes (Other)
  Sender: FDA-Public Use
  Company Number: US-EVOFEM BIOSCIENCES, INC.-2021-EVO-US003333

PATIENT

DRUGS (1)
  1. PHEXXI [Suspect]
     Active Substance: CITRIC ACID MONOHYDRATE\LACTIC ACID, L-\POTASSIUM BITARTRATE
     Indication: CONTRACEPTION
     Dosage: 5 G, PRN (AS NEEDED), AS PRESCRIBED
     Route: 067
     Dates: start: 202103, end: 2021

REACTIONS (3)
  - Pregnancy [Recovered/Resolved]
  - Drug ineffective [Unknown]
  - Abortion spontaneous [Recovered/Resolved]

NARRATIVE: CASE EVENT DATE: 20210624
